FAERS Safety Report 9468808 (Version 2)
Quarter: 2013Q3

REPORT INFORMATION
  Report Type: Spontaneous
  Country: US (occurrence: US)
  Receive Date: 20130821
  Receipt Date: 20130913
  Transmission Date: 20140515
  Serious: Yes (Death, Hospitalization)
  Sender: FDA-Public Use
  Company Number: US-B.I. PHARMACEUTICALS,INC./RIDGEFIELD-2013-BI-25810BP

PATIENT
  Age: 80 Year
  Sex: Male
  Weight: 58.97 kg

DRUGS (20)
  1. PRADAXA [Suspect]
     Indication: ATRIAL FIBRILLATION
     Dosage: 300 MG
     Route: 048
     Dates: start: 201201, end: 20120812
  2. TYLENOL [Concomitant]
     Indication: PAIN
     Route: 048
  3. ACULAR [Concomitant]
  4. PRED FORTE [Concomitant]
  5. VIGAMOX [Concomitant]
  6. SENNA [Concomitant]
     Dosage: 17.2 MG
     Route: 048
  7. OMEPRAZOLE [Concomitant]
     Dosage: 20 MG
     Route: 048
  8. CONSTULOSE [Concomitant]
     Indication: CONSTIPATION
     Route: 048
  9. DITROPAN [Concomitant]
     Dosage: 10 MG
     Route: 048
  10. TRAVATAN Z [Concomitant]
  11. SIMVASTATIN [Concomitant]
     Dosage: 20 MG
     Route: 048
  12. DOCUSATE SODIUM [Concomitant]
     Indication: CONSTIPATION
     Route: 048
  13. SITAGLIPTIN [Concomitant]
     Dosage: 100 MG
     Route: 048
  14. MULTIPLE VITAMINS [Concomitant]
     Route: 048
  15. LOSARTAN [Concomitant]
     Dosage: 100 MG
     Route: 048
  16. GLIPIZIDE [Concomitant]
     Dosage: 10 MG
     Route: 048
  17. FUROSEMIDE [Concomitant]
     Dosage: 40 MG
     Route: 048
  18. ASPIRIN [Concomitant]
     Dosage: 81 MG
     Route: 048
  19. ARTIFICIAL TEARS [Concomitant]
     Route: 031
  20. AMLODIPINE [Concomitant]
     Dosage: 10 MG
     Route: 048

REACTIONS (5)
  - Colitis ischaemic [Fatal]
  - Large intestine perforation [Fatal]
  - Haemoptysis [Unknown]
  - Rectal haemorrhage [Not Recovered/Not Resolved]
  - Coagulopathy [Unknown]
